FAERS Safety Report 7460570-6 (Version None)
Quarter: 2011Q2

REPORT INFORMATION
  Report Type: 
  Country: None (occurrence: None)
  Receive Date: 20110505
  Receipt Date: 20110504
  Transmission Date: 20111010
  Serious: Yes (Hospitalization, Other)
  Sender: FDA-Public Use
  Company Number: DE-BRISTOL-MYERS SQUIBB COMPANY-15656168

PATIENT
  Age: 17 Year
  Sex: Female
  Weight: 101 kg

DRUGS (6)
  1. ABILIFY [Suspect]
     Indication: SCHIZOAFFECTIVE DISORDER
     Dosage: 15MG DAILY
     Dates: start: 20101101, end: 20110401
  2. CITALOPRAM [Suspect]
     Indication: DEPRESSION
     Dosage: 7 TABLETS CITALOPRAM (IN TOTAL 140MG); 20MG DAILY SINCE 2009
     Dates: start: 20101201
  3. SIOFOR [Suspect]
     Indication: GLUCOSE TOLERANCE IMPAIRED
     Dosage: 14 TABLETS SIOFOR 850 (METFORMIN, IN TOTAL 11,900MG); 1500MG DAILY SINCE 2009
  4. GASTROZEPIN [Suspect]
     Indication: SALIVARY HYPERSECRETION
     Dosage: 1 DF: 14 TABLETS GASTROZEPIN 50(IN TOTAL 700MG); 100MG DAILY SINCE 2009
     Dates: start: 20090101
  5. OXYMEDIN [Suspect]
     Indication: INCONTINENCE
     Dosage: 1 DF: 14 TABS 70 MG; 10MG DAILY SINCE 2009
     Dates: start: 20090101
  6. LEPONEX [Suspect]
     Indication: SCHIZOAFFECTIVE DISORDER
     Dosage: TABLETS LEPONEX 50,100; 375MG DAILY SINCE 2009
     Dates: start: 20090101

REACTIONS (6)
  - SOMNOLENCE [None]
  - OPHTHALMOPLEGIA [None]
  - DIASTOLIC HYPOTENSION [None]
  - SUICIDE ATTEMPT [None]
  - MULTIPLE DRUG OVERDOSE [None]
  - TACHYCARDIA [None]
